FAERS Safety Report 9368055 (Version 1)
Quarter: 2013Q2

REPORT INFORMATION
  Report Type: Spontaneous
  Country: US (occurrence: US)
  Receive Date: 20130625
  Receipt Date: 20130625
  Transmission Date: 20140414
  Serious: No
  Sender: FDA-Public Use
  Company Number: US-ASTELLAS-2012US011074

PATIENT
  Age: 37 Year
  Sex: Male

DRUGS (1)
  1. VESICARE [Suspect]
     Indication: MICTURITION URGENCY
     Dosage: 10 MG, UID/QD
     Route: 048
     Dates: start: 20121005, end: 20121105

REACTIONS (2)
  - Dry eye [Unknown]
  - Dry mouth [Unknown]
